FAERS Safety Report 24066687 (Version 1)
Quarter: 2024Q3

REPORT INFORMATION
  Report Type: Spontaneous
  Country: PL (occurrence: PL)
  Receive Date: 20240709
  Receipt Date: 20240709
  Transmission Date: 20241016
  Serious: Yes (Other)
  Sender: PFIZER
  Company Number: PL-PFIZER INC-202400204982

PATIENT
  Age: 1 Year
  Sex: Male

DRUGS (4)
  1. ANTIHEMOPHILIC FACTOR, HUMAN RECOMBINANT RESIDUES 743-1636 DELETED [Suspect]
     Active Substance: ANTIHEMOPHILIC FACTOR, HUMAN RECOMBINANT RESIDUES 743-1636 DELETED
     Indication: Factor VIII deficiency
     Dosage: 100 IU/KG, 2X/DAY (100UNITS/KG BODY WEIGHT TWICE DAILY)
     Dates: start: 201602
  2. EFMOROCTOCOG ALFA [Suspect]
     Active Substance: EFMOROCTOCOG ALFA
     Indication: Factor VIII deficiency
     Dosage: DAILY MORNING DOSING(AT 100UNITS/KG MATERNAL BODY WEIGHT ONCE DAILY)
     Dates: start: 201702, end: 201710
  3. ANTIHEMOPHILIC FACTOR HUMAN [Suspect]
     Active Substance: ANTIHEMOPHILIC FACTOR HUMAN
     Indication: Factor VIII deficiency
     Dosage: 100 IU/KG, 2X/DAY (AT 100UNITS/KG BODY WEIGHT TWICE DAILY).
     Dates: start: 201710, end: 201901
  4. PLASMA PROTEIN FRACTION (HUMAN) [Suspect]
     Active Substance: PLASMA PROTEIN FRACTION (HUMAN)
     Dates: start: 201710

REACTIONS (2)
  - Drug ineffective [Unknown]
  - Anti factor VIII antibody increased [Unknown]

NARRATIVE: CASE EVENT DATE: 20160201
